FAERS Safety Report 4698991-7 (Version None)
Quarter: 2005Q2

REPORT INFORMATION
  Report Type: 
  Country: None (occurrence: None)
  Receive Date: 20050624
  Receipt Date: 20020308
  Transmission Date: 20051028
  Serious: Yes (Death, Hospitalization)
  Sender: FDA-Public Use
  Company Number: PHBS2002BR03312

PATIENT
  Age: 71 Year
  Sex: Male
  Weight: 76 kg

DRUGS (4)
  1. FORADIL [Suspect]
     Indication: EMPHYSEMA
     Dosage: 12 UG/DAY
  2. AMINOPHYLLINE [Concomitant]
     Indication: EMPHYSEMA
     Dosage: 1 DF/DAY
     Route: 048
  3. METICORTEN [Concomitant]
     Indication: EMPHYSEMA
     Dosage: 1 DF/DAY
     Route: 048
  4. MONOCORDIL [Concomitant]
     Indication: EMPHYSEMA
     Dosage: 1 DF, TID
     Route: 048

REACTIONS (3)
  - CARDIAC ARREST [None]
  - MUSCLE SPASMS [None]
  - PNEUMONIA [None]
